FAERS Safety Report 18219494 (Version 1)
Quarter: 2020Q3

REPORT INFORMATION
  Report Type: Spontaneous
  Country: US (occurrence: US)
  Receive Date: 20200901
  Receipt Date: 20200901
  Transmission Date: 20201103
  Serious: Yes (Other)
  Sender: FDA-Public Use
  Company Number: US-NOVOPROD-749439

PATIENT
  Age: 75 Year
  Sex: Male

DRUGS (2)
  1. NOVOLIN R [Suspect]
     Active Substance: INSULIN HUMAN
     Indication: TYPE 1 DIABETES MELLITUS
     Dosage: 17 IU, QD
     Route: 058
  2. NOVOLIN N [Suspect]
     Active Substance: INSULIN HUMAN
     Indication: TYPE 1 DIABETES MELLITUS
     Dosage: 14 IU, QD (4X PER DAY ? 5 UNITS, 3, 3, 3)
     Route: 058

REACTIONS (5)
  - Blood glucose increased [Unknown]
  - Wrong technique in product usage process [Unknown]
  - Neuropathic arthropathy [Unknown]
  - Foot fracture [Unknown]
  - Subcutaneous drug absorption impaired [Unknown]
